FAERS Safety Report 13716351 (Version 1)
Quarter: 2017Q3

REPORT INFORMATION
  Report Type: Spontaneous
  Country: ES (occurrence: ES)
  Receive Date: 20170705
  Receipt Date: 20170705
  Transmission Date: 20171127
  Serious: Yes (Other)
  Sender: FDA-Public Use
  Company Number: ES-ASTELLAS-2017US026082

PATIENT
  Age: 76 Year
  Sex: Female

DRUGS (2)
  1. TARCEVA [Suspect]
     Active Substance: ERLOTINIB HYDROCHLORIDE
     Indication: NON-SMALL CELL LUNG CANCER
     Route: 065
  2. TARCEVA [Suspect]
     Active Substance: ERLOTINIB HYDROCHLORIDE
     Route: 065

REACTIONS (7)
  - Ulcerative keratitis [Recovering/Resolving]
  - Eye inflammation [Recovering/Resolving]
  - Corneal thinning [Recovering/Resolving]
  - Keratitis interstitial [Recovering/Resolving]
  - Corneal neovascularisation [Recovering/Resolving]
  - Corneal oedema [Recovering/Resolving]
  - Retinal fibrosis [Recovering/Resolving]
